FAERS Safety Report 5188723-0 (Version None)
Quarter: 2006Q4

REPORT INFORMATION
  Report Type: 
  Country: None (occurrence: None)
  Receive Date: 20061214
  Receipt Date: 20061201
  Transmission Date: 20070319
  Serious: Yes (Other)
  Sender: FDA-Public Use
  Company Number: 2006150267

PATIENT
  Age: 28 Year
  Sex: Female

DRUGS (4)
  1. DEPO-PROVERA [Suspect]
     Dosage: SEE IMAGE
     Route: 030
     Dates: start: 19950801, end: 19950801
  2. DEPO-PROVERA [Suspect]
     Dosage: SEE IMAGE
     Route: 030
     Dates: start: 19980101, end: 19980101
  3. DEPO-PROVERA [Suspect]
     Dosage: SEE IMAGE
     Route: 030
     Dates: start: 20010601, end: 20010601
  4. DEPO-PROVERA [Suspect]
     Dosage: SEE IMAGE
     Route: 030
     Dates: start: 20020201, end: 20020201

REACTIONS (3)
  - BONE DENSITY DECREASED [None]
  - FEMUR FRACTURE [None]
  - HIP FRACTURE [None]
